FAERS Safety Report 6712264-X (Version None)
Quarter: 2010Q2

REPORT INFORMATION
  Report Type: 
  Country: None (occurrence: None)
  Receive Date: 20100505
  Receipt Date: 20100423
  Transmission Date: 20101027
  Serious: Yes (Hospitalization)
  Sender: FDA-Public Use
  Company Number: DE-ELI_LILLY_AND_COMPANY-DE201004006255

PATIENT
  Age: 47 Year
  Sex: Female

DRUGS (3)
  1. ZYPREXA [Suspect]
     Indication: BIPOLAR DISORDER
     Dosage: UNK, UNK
     Route: 048
     Dates: start: 20100101, end: 20100421
  2. ZYPREXA [Suspect]
     Dosage: 120 MG, DAILY (1/D)
     Route: 048
     Dates: start: 20100422, end: 20100422
  3. ZYPREXA [Suspect]
     Dosage: 60 MG, DAILY (1/D)
     Route: 048
     Dates: start: 20100423, end: 20100423

REACTIONS (3)
  - MANIA [None]
  - OVERDOSE [None]
  - TENSION [None]
